FAERS Safety Report 19422022 (Version 1)
Quarter: 2021Q2

REPORT INFORMATION
  Report Type: Spontaneous
  Country: US (occurrence: US)
  Receive Date: 20210616
  Receipt Date: 20210616
  Transmission Date: 20210717
  Serious: No
  Sender: FDA-Public Use
  Company Number: US-AUROBINDO-AUR-APL-2020-057588

PATIENT
  Sex: Male

DRUGS (1)
  1. OLANZAPINE TABLETS 2.5MG [Suspect]
     Active Substance: OLANZAPINE
     Indication: PRODUCT USED FOR UNKNOWN INDICATION
     Dosage: UNK
     Route: 065

REACTIONS (4)
  - Stress [Unknown]
  - Bruxism [Unknown]
  - Muscle tightness [Unknown]
  - Anxiety [Unknown]
